FAERS Safety Report 8602846-2 (Version None)
Quarter: 2012Q3

REPORT INFORMATION
  Report Type: 
  Country: None (occurrence: None)
  Receive Date: 20120817
  Receipt Date: 20120813
  Transmission Date: 20120928
  Serious: Yes (Other)
  Sender: FDA-Public Use
  Company Number: US-GLAXOSMITHKLINE-A0975015A

PATIENT
  Age: 42 Year
  Sex: Female

DRUGS (1)
  1. FLOLAN [Suspect]
     Indication: PRODUCT USED FOR UNKNOWN INDICATION
     Dosage: 20NGKM CONTINUOUS
     Route: 042
     Dates: start: 20080919

REACTIONS (7)
  - VOMITING [None]
  - LOSS OF CONSCIOUSNESS [None]
  - SYNCOPE [None]
  - PANCREATIC DISORDER [None]
  - NAUSEA [None]
  - NOCTURNAL DYSPNOEA [None]
  - WEIGHT FLUCTUATION [None]
